FAERS Safety Report 7652076 (Version 4)
Quarter: 2014Q2

REPORT INFORMATION
  Report Type: Spontaneous
  Country: US (occurrence: US)
  Receive Date: 20101101
  Receipt Date: 20140508
  Transmission Date: 20141212
  Serious: Yes (Hospitalization, Other)
  Sender: FDA-Public Use
  Company Number: US-BAYER-201038670NA

PATIENT
  Age: 22 Year
  Sex: Female
  Weight: 108.84 kg

DRUGS (4)
  1. YASMIN [Suspect]
     Indication: PRODUCT USED FOR UNKNOWN INDICATION
     Dosage: UNK
     Route: 048
     Dates: start: 200206, end: 200410
  2. YASMIN [Suspect]
     Indication: PRODUCT USED FOR UNKNOWN INDICATION
     Dosage: UNK
     Dates: start: 200603, end: 200908
  3. OCELLA [Suspect]
     Dosage: UNK
     Dates: start: 200206, end: 200410
  4. OCELLA [Suspect]
     Dosage: UNK
     Dates: start: 200603, end: 200908

REACTIONS (6)
  - Gallbladder injury [Unknown]
  - Cholelithiasis [None]
  - Pain [Unknown]
  - Gallbladder disorder [None]
  - Bile duct stone [None]
  - Biliary colic [None]
